FAERS Safety Report 22112705 (Version 1)
Quarter: 2023Q1

REPORT INFORMATION
  Report Type: Spontaneous
  Country: US (occurrence: US)
  Receive Date: 20230319
  Receipt Date: 20230319
  Transmission Date: 20230418
  Serious: Yes (Hospitalization)
  Sender: FDA-Public Use
  Company Number: US-BEIGENE USA INC-BGN-2023-001822

PATIENT

DRUGS (2)
  1. BRUKINSA [Suspect]
     Active Substance: ZANUBRUTINIB
     Indication: Chronic lymphocytic leukaemia
     Dosage: 320 MILLIGRAM
     Route: 048
     Dates: start: 2021
  2. BACTRIM [Concomitant]
     Active Substance: SULFAMETHOXAZOLE\TRIMETHOPRIM
     Dosage: UNK
     Route: 048

REACTIONS (10)
  - Pharyngeal swelling [Recovered/Resolved]
  - Mouth swelling [Recovered/Resolved]
  - Oral disorder [Unknown]
  - Ageusia [Not Recovered/Not Resolved]
  - Salivary hypersecretion [Recovered/Resolved]
  - Lung disorder [Not Recovered/Not Resolved]
  - Muscle spasms [Unknown]
  - Dehydration [Unknown]
  - Oral discomfort [Not Recovered/Not Resolved]
  - Off label use [Unknown]

NARRATIVE: CASE EVENT DATE: 20210101
